FAERS Safety Report 5987863-3 (Version None)
Quarter: 2008Q4

REPORT INFORMATION
  Report Type: 
  Country: None (occurrence: None)
  Receive Date: 20081209
  Receipt Date: 20071218
  Transmission Date: 20090506
  Serious: No
  Sender: FDA-Public Use
  Company Number: US-TYCO HEALTHCARE/MALLINCKRODT-T200701363

PATIENT

DRUGS (2)
  1. ULTRA-TECHNEKOW [Suspect]
     Indication: CARDIAC FUNCTION TEST
     Dosage: UNK, SINGLE
     Dates: start: 20071004, end: 20071004
  2. MYOVIEW [Suspect]
     Indication: CARDIAC FUNCTION TEST
     Dosage: UNK, SINGLE
     Route: 042
     Dates: start: 20071004, end: 20071004

REACTIONS (1)
  - COLD SWEAT [None]
